FAERS Safety Report 20327553 (Version 2)
Quarter: 2022Q1

REPORT INFORMATION
  Report Type: Report from Study
  Country: LB (occurrence: LB)
  Receive Date: 20220112
  Receipt Date: 20220121
  Transmission Date: 20220423
  Serious: Yes (Other)
  Sender: FDA-Public Use
  Company Number: LB-NOVARTISPH-NVSC2022LB004076

PATIENT
  Age: 26 Year
  Sex: Male
  Weight: 50 kg

DRUGS (4)
  1. BEOVU [Suspect]
     Active Substance: BROLUCIZUMAB-DBLL
     Indication: Diabetic retinal oedema
     Dosage: UNK
     Route: 031
     Dates: start: 202110
  2. BEOVU [Suspect]
     Active Substance: BROLUCIZUMAB-DBLL
     Dosage: UNK
     Route: 031
     Dates: start: 202112
  3. NOVORAPID [Concomitant]
     Active Substance: INSULIN ASPART
     Indication: Product used for unknown indication
     Dosage: UNK
     Route: 065
  4. LANTUS [Concomitant]
     Active Substance: INSULIN GLARGINE
     Indication: Product used for unknown indication
     Dosage: UNK
     Route: 065

REACTIONS (2)
  - Retinal artery occlusion [Unknown]
  - Off label use [Unknown]

NARRATIVE: CASE EVENT DATE: 20211001
